FAERS Safety Report 17337691 (Version 1)
Quarter: 2020Q1

REPORT INFORMATION
  Report Type: Spontaneous
  Country: US (occurrence: US)
  Receive Date: 20200129
  Receipt Date: 20200129
  Transmission Date: 20200409
  Serious: No
  Sender: FDA-Public Use
  Company Number: US-BRISTOL-MYERS SQUIBB COMPANY-BMS-2020-005102

PATIENT
  Sex: Female
  Weight: 67.59 kg

DRUGS (4)
  1. ELIQUIS [Suspect]
     Active Substance: APIXABAN
     Indication: THROMBOSIS
     Dosage: 10 MILLIGRAM, BID
     Route: 048
     Dates: start: 202001
  2. ZANTAC [Concomitant]
     Active Substance: RANITIDINE HYDROCHLORIDE
     Indication: DYSPEPSIA
     Dosage: UNK
     Route: 065
  3. ZOMIG [Concomitant]
     Active Substance: ZOLMITRIPTAN
     Indication: MIGRAINE
     Dosage: UNK
     Route: 065
  4. ELIQUIS [Suspect]
     Active Substance: APIXABAN
     Indication: PULMONARY EMBOLISM
     Dosage: 5 MILLIGRAM, BID
     Route: 048

REACTIONS (4)
  - Swelling face [Unknown]
  - Chest pain [Unknown]
  - Peripheral swelling [Unknown]
  - Headache [Unknown]
